FAERS Safety Report 7544476-X (Version None)
Quarter: 2011Q2

REPORT INFORMATION
  Report Type: 
  Country: None (occurrence: None)
  Receive Date: 20110613
  Receipt Date: 20110517
  Transmission Date: 20111010
  Serious: Yes (Hospitalization, Other)
  Sender: FDA-Public Use
  Company Number: PHHY2011BR43121

PATIENT
  Age: 58 Year
  Sex: Female
  Weight: 68 kg

DRUGS (3)
  1. ZOMETA [Suspect]
     Dates: start: 20080101
  2. FEMARA [Suspect]
     Dosage: 2.5 MG, UNK
  3. CHEMOTHERAPEUTICS NOS [Concomitant]

REACTIONS (6)
  - ILEUS PARALYTIC [None]
  - MONOPLEGIA [None]
  - FATIGUE [None]
  - PNEUMONIA [None]
  - SWELLING [None]
  - SINUSITIS [None]
